FAERS Safety Report 11564970 (Version 1)
Quarter: 2015Q3

REPORT INFORMATION
  Report Type: Spontaneous
  Country: US (occurrence: US)
  Receive Date: 20150916
  Receipt Date: 20150916
  Transmission Date: 20151125
  Serious: Yes (Hospitalization)
  Sender: FDA-Public Use
  Company Number: US-ELI_LILLY_AND_COMPANY-US200904001793

PATIENT
  Age: 60 Year
  Sex: Female

DRUGS (8)
  1. FERROUS SULFATE [Concomitant]
     Active Substance: FERROUS SULFATE\FERROUS SULFATE, DRIED
  2. FORTEO [Suspect]
     Active Substance: TERIPARATIDE
  3. LEXAPRO [Concomitant]
     Active Substance: ESCITALOPRAM OXALATE
  4. LOPRESSOR [Concomitant]
     Active Substance: METOPROLOL TARTRATE
  5. DAKINS FULL [Concomitant]
     Active Substance: SODIUM HYPOCHLORITE
  6. VITAMIN D [Concomitant]
     Active Substance: CHOLECALCIFEROL
  7. PRILOSEC [Concomitant]
     Active Substance: OMEPRAZOLE MAGNESIUM
  8. BACLOFEN. [Concomitant]
     Active Substance: BACLOFEN

REACTIONS (1)
  - Essential hypertension [Unknown]

NARRATIVE: CASE EVENT DATE: 20090406
